FAERS Safety Report 9710451 (Version 1)
Quarter: 2013Q4

REPORT INFORMATION
  Report Type: Spontaneous
  Country: US (occurrence: US)
  Receive Date: 20131126
  Receipt Date: 20131126
  Transmission Date: 20140711
  Serious: No
  Sender: FDA-Public Use
  Company Number: US-BRISTOL-MYERS SQUIBB COMPANY-19420322

PATIENT
  Age: 74 Year
  Sex: Male
  Weight: 103.85 kg

DRUGS (12)
  1. BYDUREON [Suspect]
     Dates: start: 2013
  2. LIPITOR [Concomitant]
  3. HYDROCHLOROTHIAZIDE [Concomitant]
  4. PROTONIX [Concomitant]
  5. ISOSORBIDE [Concomitant]
  6. NORVASC [Concomitant]
  7. PROSCAR [Concomitant]
  8. COZAAR [Concomitant]
     Dosage: 1DF:50 MG OR GM
  9. PLAVIX [Concomitant]
  10. TOPROL XL [Concomitant]
     Dosage: 1/2 TAB
  11. ASPIRIN [Concomitant]
  12. NIACIN [Concomitant]
     Dosage: 1DF:1000 MG OR GM

REACTIONS (1)
  - Blood glucose increased [Unknown]
